FAERS Safety Report 26096542 (Version 1)
Quarter: 2025Q4

REPORT INFORMATION
  Report Type: Spontaneous
  Country: EU (occurrence: EU)
  Receive Date: 20251127
  Receipt Date: 20251127
  Transmission Date: 20260118
  Serious: Yes (Life-Threatening)
  Sender: RANBAXY
  Company Number: EU-AFSSAPS-BX2025001251

PATIENT
  Age: 10 Year
  Sex: Female
  Weight: 39 kg

DRUGS (4)
  1. AZITHROMYCIN [Suspect]
     Active Substance: AZITHROMYCIN
     Indication: Eye infection toxoplasmal
     Dosage: 500 MILLIGRAM, DAILY
     Route: 048
     Dates: start: 20250625, end: 20250802
  2. PYRIMETHAMINE\SULFADOXINE [Suspect]
     Active Substance: PYRIMETHAMINE\SULFADOXINE
     Indication: Eye infection toxoplasmal
     Dosage: 50 MILLIGRAM, DAILY
     Route: 048
     Dates: start: 20250625, end: 20250802
  3. LEUCOVORIN [Concomitant]
     Active Substance: LEUCOVORIN\LEUCOVORIN CALCIUM
     Indication: Product used for unknown indication
     Dosage: UNK
     Route: 065
  4. PREDNISONE [Concomitant]
     Active Substance: PREDNISONE
     Indication: Product used for unknown indication
     Dosage: UNK
     Route: 065

REACTIONS (1)
  - Generalised tonic-clonic seizure [Recovered/Resolved]

NARRATIVE: CASE EVENT DATE: 20250731
